FAERS Safety Report 9025910 (Version 1)
Quarter: 2013Q1

REPORT INFORMATION
  Report Type: Spontaneous
  Country: US (occurrence: None)
  Receive Date: 20130104
  Receipt Date: 20130104
  Transmission Date: 20140127
  Serious: Yes (Other)
  Sender: FDA-Public Use
  Company Number: R-12-060

PATIENT
  Age: 26 Year
  Sex: Male
  Weight: 63.5 kg

DRUGS (1)
  1. ASTHMANEFRIN [Suspect]
     Indication: ASTHMA
     Dosage: 3 INHALATIONS 054
     Route: 055
     Dates: start: 20121222, end: 20121223

REACTIONS (3)
  - Tremor [None]
  - Heart rate increased [None]
  - Haemoptysis [None]
